FAERS Safety Report 9133926 (Version 1)
Quarter: 2013Q1

REPORT INFORMATION
  Report Type: Report from Study
  Country: US (occurrence: US)
  Receive Date: 20130303
  Receipt Date: 20130303
  Transmission Date: 20140127
  Serious: Yes (Other)
  Sender: FDA-Public Use
  Company Number: US-009507513-1302USA010932

PATIENT
  Sex: 0

DRUGS (1)
  1. COZAAR [Suspect]
     Indication: PROPHYLAXIS
     Dosage: 100 MG PER DAY
     Route: 048

REACTIONS (1)
  - Hyperkalaemia [Unknown]
